FAERS Safety Report 5872513-7 (Version None)
Quarter: 2008Q3

REPORT INFORMATION
  Report Type: 
  Country: None (occurrence: None)
  Receive Date: 20080905
  Receipt Date: 20080903
  Transmission Date: 20090109
  Serious: Yes (Life-Threatening)
  Sender: FDA-Public Use
  Company Number: JP-EISAI MEDICAL RESEARCH-E2090-00541-SPO-JP

PATIENT
  Sex: Male

DRUGS (2)
  1. ZONISAMIDE [Suspect]
     Indication: CONVULSION
     Route: 048
     Dates: start: 20080607, end: 20080811
  2. PENTCILLIN [Suspect]
     Indication: PYREXIA
     Dosage: 2 GRAM DR
     Dates: start: 20080810, end: 20080811

REACTIONS (1)
  - AGRANULOCYTOSIS [None]
